FAERS Safety Report 8338856 (Version 3)
Quarter: 2015Q2

REPORT INFORMATION
  Report Type: Spontaneous
  Country: US (occurrence: US)
  Receive Date: 20120117
  Receipt Date: 20150623
  Transmission Date: 20150821
  Serious: Yes (Other)
  Sender: FDA-Public Use
  Company Number: US-BAYER-2012-004555

PATIENT
  Age: 35 Year
  Sex: Female
  Weight: 97.51 kg

DRUGS (1)
  1. MIRENA [Suspect]
     Active Substance: LEVONORGESTREL
     Dosage: 20 MCG/24HR, CONT
     Route: 015
     Dates: start: 20090121, end: 20120614

REACTIONS (6)
  - Device dislocation [None]
  - Vaginal haemorrhage [None]
  - Pain [None]
  - Device dislocation [None]
  - Injury [None]
  - Emotional distress [None]
